FAERS Safety Report 14713167 (Version 1)
Quarter: 2018Q2

REPORT INFORMATION
  Report Type: Spontaneous
  Country: US (occurrence: US)
  Receive Date: 20180404
  Receipt Date: 20180404
  Transmission Date: 20180711
  Serious: No
  Sender: FDA-Public Use
  Company Number: US-PFIZER INC-2018135147

PATIENT
  Sex: Female

DRUGS (2)
  1. CHANTIX [Suspect]
     Active Substance: VARENICLINE TARTRATE
     Indication: SMOKING CESSATION THERAPY
     Dosage: UNK (THREE TIMES THROUGH THE YEARS)
     Dates: start: 20180328
  2. METFORMIN [Concomitant]
     Active Substance: METFORMIN HYDROCHLORIDE
     Dosage: UNK

REACTIONS (9)
  - Insomnia [Unknown]
  - Decreased appetite [Unknown]
  - Drug ineffective [Unknown]
  - Musculoskeletal chest pain [Unknown]
  - Intentional dose omission [Unknown]
  - Musculoskeletal pain [Unknown]
  - Nausea [Unknown]
  - Muscle spasms [Not Recovered/Not Resolved]
  - Weight decreased [Unknown]

NARRATIVE: CASE EVENT DATE: 20180330
